FAERS Safety Report 11168270 (Version 2)
Quarter: 2015Q3

REPORT INFORMATION
  Report Type: Spontaneous
  Country: JP (occurrence: JP)
  Receive Date: 20150605
  Receipt Date: 20150708
  Transmission Date: 20151125
  Serious: Yes (Hospitalization)
  Sender: FDA-Public Use
  Company Number: JP-ELI_LILLY_AND_COMPANY-JP201506001543

PATIENT
  Age: 45 Year
  Sex: Female

DRUGS (3)
  1. HUMAN INSULIN [Suspect]
     Active Substance: INSULIN HUMAN
     Indication: TYPE 1 DIABETES MELLITUS
     Dosage: 8 IU, UNK
     Route: 065
  2. HUMALOG [Suspect]
     Active Substance: INSULIN LISPRO
     Indication: TYPE 1 DIABETES MELLITUS
     Dosage: 30 IU, UNK
     Route: 065
  3. HUMALOG [Suspect]
     Active Substance: INSULIN LISPRO
     Dosage: 18 IU, UNK
     Route: 065

REACTIONS (4)
  - Lipohypertrophy [Recovered/Resolved]
  - Hypoglycaemia [Recovered/Resolved]
  - Osteomyelitis chronic [Recovered/Resolved]
  - Blood glucose increased [Recovered/Resolved]
